FAERS Safety Report 17004479 (Version 5)
Quarter: 2020Q3

REPORT INFORMATION
  Report Type: Spontaneous
  Country: US (occurrence: US)
  Receive Date: 20191107
  Receipt Date: 20200817
  Transmission Date: 20201102
  Serious: Yes (Hospitalization, Other)
  Sender: FDA-Public Use
  Company Number: US-PFIZER INC-2019001355

PATIENT
  Age: 73 Year
  Sex: Male
  Weight: 61.22 kg

DRUGS (5)
  1. DILANTIN [Suspect]
     Active Substance: PHENYTOIN
     Dosage: 350 MG, DAILY MG (200 MG IN THE MORNING 150 MG IN THE EVENING AT TIMES)
     Route: 048
  2. DILANTIN [Suspect]
     Active Substance: PHENYTOIN
     Dosage: 50 MG, 1X/DAY
     Route: 048
  3. TAMSULOSIN [Concomitant]
     Active Substance: TAMSULOSIN
     Dosage: 0.08 MG, 1X/DAY (2 CAP A DAY)
  4. METOPROLOL. [Concomitant]
     Active Substance: METOPROLOL
     Dosage: 25 MG, 2X/DAY
  5. DILANTIN [Suspect]
     Active Substance: PHENYTOIN
     Indication: SEIZURE
     Dosage: 300 MG, DAILY (2 CAPSULES IN THE MORNING AND 1 CAPSULE IN THE EVENING)
     Route: 048
     Dates: start: 2002

REACTIONS (2)
  - Deafness [Unknown]
  - Hypoacusis [Not Recovered/Not Resolved]
